FAERS Safety Report 10460077 (Version 4)
Quarter: 2015Q2

REPORT INFORMATION
  Report Type: Spontaneous
  Country: US (occurrence: US)
  Receive Date: 20140917
  Receipt Date: 20150429
  Transmission Date: 20150821
  Serious: No
  Sender: FDA-Public Use
  Company Number: US-PFIZER INC-2014253556

PATIENT
  Age: 54 Year
  Sex: Female
  Weight: 112 kg

DRUGS (8)
  1. ZITHROMAX [Concomitant]
     Active Substance: AZITHROMYCIN DIHYDRATE
     Dosage: 250 MG, 1X/DAY (TAKE 2 TABLETS STAT)
     Route: 048
  2. PRAVACHOL [Concomitant]
     Active Substance: PRAVASTATIN SODIUM
     Dosage: 40 MG, DAILY (TAKE 1 TABLETBY MOUTH EVERY MORNING)
     Route: 048
  3. BOSULIF [Suspect]
     Active Substance: BOSUTINIB MONOHYDRATE
     Indication: CHRONIC MYELOID LEUKAEMIA
     Dosage: DAILY (500 MG DAILY FOR 14 DAYS/400MG DAILY)
     Route: 048
     Dates: start: 201409
  4. PROZAC [Concomitant]
     Active Substance: FLUOXETINE HYDROCHLORIDE
     Dosage: 20 MG, UNK (20MG AT BE DTIME)
     Route: 048
  5. LASIX [Concomitant]
     Active Substance: FUROSEMIDE
     Dosage: 20 MG, DAILY (TAKE 2 TABLETS PO QAM AND 1 TABLET QPM)
     Route: 048
  6. SYNTHROID [Concomitant]
     Active Substance: LEVOTHYROXINE SODIUM
     Dosage: 175 UG, UNK (EVERY MORNING BEFORE BREAKFAST)
     Route: 048
  7. HYDRODIURIL [Concomitant]
     Active Substance: HYDROCHLOROTHIAZIDE
     Dosage: 12.5 MG, DAILY
     Route: 048
  8. LEVOTHROID [Concomitant]
     Active Substance: LEVOTHYROXINE SODIUM
     Dosage: 175 UG, UNK (EVERY MORNING BEFORE BREAKFAST)
     Route: 048

REACTIONS (18)
  - Secretion discharge [Unknown]
  - Pain [Unknown]
  - Mean cell haemoglobin concentration decreased [Unknown]
  - Red cell distribution width increased [Unknown]
  - Vomiting [Unknown]
  - Haemoglobin decreased [Unknown]
  - Decreased appetite [Unknown]
  - Diarrhoea [Unknown]
  - Diarrhoea [Recovered/Resolved]
  - Dyspnoea [Unknown]
  - Cough [Unknown]
  - Chest pain [Unknown]
  - Lymphocyte count decreased [Unknown]
  - Aspartate aminotransferase increased [Unknown]
  - Pyrexia [Unknown]
  - Alanine aminotransferase increased [Unknown]
  - Red blood cell count decreased [Unknown]
  - Blood sodium decreased [Unknown]

NARRATIVE: CASE EVENT DATE: 2014
